FAERS Safety Report 8590400-0 (Version None)
Quarter: 2012Q3

REPORT INFORMATION
  Report Type: 
  Country: None (occurrence: None)
  Receive Date: 20120813
  Receipt Date: 20120801
  Transmission Date: 20120928
  Serious: No
  Sender: FDA-Public Use
  Company Number: US-ASTRAZENECA-2009SE11780

PATIENT
  Age: 61 Year
  Sex: Female
  Weight: 68 kg

DRUGS (14)
  1. RHINOCORT [Suspect]
     Dosage: 2 SPRAYS DAILY
     Route: 045
     Dates: start: 20120313, end: 20120326
  2. RHINOCORT [Suspect]
     Indication: SEASONAL ALLERGY
     Dosage: 32 MCG 120 METER SPRAY/UNIT
     Route: 045
  3. PRILOSEC [Suspect]
     Route: 048
  4. ROLAIDS [Concomitant]
  5. PRILOSEC OTC [Suspect]
     Indication: GASTROOESOPHAGEAL REFLUX DISEASE
     Route: 048
  6. RHINOCORT [Suspect]
     Indication: SINUS DISORDER
     Dosage: 32 MCG 120 METER SPRAY/UNIT
     Route: 045
  7. RHINOCORT [Suspect]
     Dosage: 2 PUFFS, PRN
     Route: 045
  8. RHINOCORT [Suspect]
     Dosage: 2 PUFFS, PRN
     Route: 045
  9. RHINOCORT [Suspect]
     Dosage: 2 SPRAYS DAILY
     Route: 045
     Dates: start: 20120313, end: 20120326
  10. ANACIN [Concomitant]
  11. ANTIBIOTICS [Concomitant]
  12. RHINOCORT [Suspect]
     Indication: RHINITIS SEASONAL
     Dosage: 32 MCG 120 METER SPRAY/UNIT
     Route: 045
  13. RHINOCORT [Suspect]
     Dosage: 2 PUFFS, PRN
     Route: 045
  14. RHINOCORT [Suspect]
     Dosage: 2 SPRAYS DAILY
     Route: 045
     Dates: start: 20120313, end: 20120326

REACTIONS (12)
  - EYE IRRITATION [None]
  - GINGIVITIS [None]
  - INTENTIONAL DRUG MISUSE [None]
  - IRON DEFICIENCY [None]
  - HEADACHE [None]
  - SNEEZING [None]
  - OFF LABEL USE [None]
  - VISION BLURRED [None]
  - NASAL CONGESTION [None]
  - VISUAL IMPAIRMENT [None]
  - SINUSITIS [None]
  - GINGIVAL DISORDER [None]
